FAERS Safety Report 15557252 (Version 5)
Quarter: 2018Q4

REPORT INFORMATION
  Report Type: Spontaneous
  Country: US (occurrence: US)
  Receive Date: 20181026
  Receipt Date: 20181220
  Transmission Date: 20190205
  Serious: Yes (Death, Hospitalization)
  Sender: FDA-Public Use
  Company Number: US-ACTELION-A-NJ2018-180531

PATIENT
  Age: 63 Year
  Sex: Female
  Weight: 149.66 kg

DRUGS (3)
  1. UPTRAVI [Suspect]
     Active Substance: SELEXIPAG
     Indication: PULMONARY ARTERIAL HYPERTENSION
     Dosage: 400 MCG, BID
     Route: 048
  2. SILDENAFIL CITRATE. [Concomitant]
     Active Substance: SILDENAFIL CITRATE
  3. WARFARIN [Concomitant]
     Active Substance: WARFARIN

REACTIONS (11)
  - Oedema [Unknown]
  - Unresponsive to stimuli [Unknown]
  - Pneumonia [Unknown]
  - Fluid retention [Unknown]
  - Fluid overload [Not Recovered/Not Resolved]
  - Death [Fatal]
  - Pyrexia [Unknown]
  - Infection [Unknown]
  - Inflammatory marker decreased [Recovering/Resolving]
  - Sepsis [Unknown]
  - Acute kidney injury [Recovering/Resolving]

NARRATIVE: CASE EVENT DATE: 20181201
